FAERS Safety Report 6096025-3 (Version None)
Quarter: 2009Q1

REPORT INFORMATION
  Report Type: 
  Country: None (occurrence: None)
  Receive Date: 20090225
  Receipt Date: 20090225
  Transmission Date: 20090719
  Serious: Yes (Hospitalization)
  Sender: FDA-Public Use
  Company Number: None

PATIENT
  Age: 50 Year
  Sex: Female
  Weight: 107.5025 kg

DRUGS (4)
  1. PLAVIX [Suspect]
     Indication: CORONARY ARTERIAL STENT INSERTION
     Dosage: 1 DAILY
     Dates: start: 20071101, end: 20080101
  2. PLAVIX [Suspect]
     Indication: CORONARY ARTERY DISEASE
     Dosage: 1 DAILY
     Dates: start: 20071101, end: 20080101
  3. PLAVIX [Suspect]
     Indication: CORONARY ARTERIAL STENT INSERTION
     Dosage: 1 DAILY
     Dates: start: 20081008, end: 20081212
  4. PLAVIX [Suspect]
     Indication: CORONARY ARTERY DISEASE
     Dosage: 1 DAILY
     Dates: start: 20081008, end: 20081212

REACTIONS (7)
  - BLOOD MAGNESIUM DECREASED [None]
  - BLOOD POTASSIUM DECREASED [None]
  - CHEST PAIN [None]
  - CONDITION AGGRAVATED [None]
  - GALLBLADDER PAIN [None]
  - GASTRIC ULCER [None]
  - NEPHROLITHIASIS [None]
